FAERS Safety Report 4840282-5 (Version None)
Quarter: 2005Q4

REPORT INFORMATION
  Report Type: 
  Country: None (occurrence: None)
  Receive Date: 20051031
  Receipt Date: 20050630
  Transmission Date: 20060501
  Serious: Yes (Other)
  Sender: FDA-Public Use
  Company Number: 200515531US

PATIENT
  Age: 70 Year
  Sex: Male
  Weight: 79 kg

DRUGS (14)
  1. KETEK [Suspect]
     Indication: COUGH
     Dosage: 400 MG QD PO
     Route: 048
     Dates: start: 20050523, end: 20050530
  2. KETEK [Suspect]
     Indication: PHARYNGOLARYNGEAL PAIN
     Dosage: 400 MG QD PO
     Route: 048
     Dates: start: 20050523, end: 20050530
  3. NICOTINIC ACID (NIASPAN) [Concomitant]
  4. ACETYLSALICYLIC ACID SRT [Concomitant]
  5. METOPROLOL SUCCINATE [Concomitant]
  6. ENALAPRIL [Concomitant]
  7. TAMSULOSIN HYDROCHLORIDE (FLOMAX ^BOEHRINGER INGELHEIM^) [Concomitant]
  8. MULTI-VITAMIN [Concomitant]
  9. UBIDECARENONE (COENZYME Q10) [Concomitant]
  10. FISH OIL (OMEGA 3) [Concomitant]
  11. LYCOPENE [Concomitant]
  12. SELENIUM SULFIDE [Concomitant]
  13. VITAMIN E [Concomitant]
  14. SIMVASTATIN [Concomitant]

REACTIONS (4)
  - ALANINE AMINOTRANSFERASE INCREASED [None]
  - ASPARTATE AMINOTRANSFERASE INCREASED [None]
  - BLOOD BILIRUBIN INCREASED [None]
  - C-REACTIVE PROTEIN INCREASED [None]
